FAERS Safety Report 11054671 (Version 2)
Quarter: 2015Q2

REPORT INFORMATION
  Report Type: Spontaneous
  Country: US (occurrence: US)
  Receive Date: 20150422
  Receipt Date: 20150504
  Transmission Date: 20150821
  Serious: No
  Sender: FDA-Public Use
  Company Number: US-009507513-1504USA018472

PATIENT
  Sex: Male

DRUGS (1)
  1. NASONEX [Suspect]
     Active Substance: MOMETASONE FUROATE
     Indication: TONSILLAR HYPERTROPHY
     Route: 045

REACTIONS (6)
  - Vomiting [Not Recovered/Not Resolved]
  - Influenza like illness [Unknown]
  - Pyrexia [Unknown]
  - Chills [Not Recovered/Not Resolved]
  - Abdominal pain upper [Not Recovered/Not Resolved]
  - Drug administration error [Unknown]
